FAERS Safety Report 9779081 (Version 4)
Quarter: 2014Q1

REPORT INFORMATION
  Report Type: Report from Study
  Country: US (occurrence: US)
  Receive Date: 20131223
  Receipt Date: 20140101
  Transmission Date: 20141002
  Serious: Yes (Hospitalization, Other)
  Sender: FDA-Public Use
  Company Number: US-US-EMD SERONO, INC.-7198930

PATIENT
  Age: 59 Year
  Sex: Male
  Weight: 69 kg

DRUGS (14)
  1. REBIF [Suspect]
     Indication: MULTIPLE SCLEROSIS
     Route: 058
     Dates: start: 20130116, end: 201312
  2. REBIF [Suspect]
     Route: 058
  3. BABY ASPIRIN [Concomitant]
     Indication: HYPERTENSION
  4. BABY ASPIRIN [Concomitant]
     Indication: PROPHYLAXIS
  5. LANTUS [Concomitant]
     Indication: DIABETES MELLITUS
     Route: 058
  6. HUMALOG                            /00030501/ [Concomitant]
     Indication: DIABETES MELLITUS
     Route: 058
  7. ATENOLOL [Concomitant]
     Indication: HYPERTENSION
  8. CLONIDINE [Concomitant]
     Indication: HYPERTENSION
  9. LISINOPRIL [Concomitant]
     Indication: HYPERTENSION
     Route: 048
  10. SIMVASTATIN [Concomitant]
     Indication: PRODUCT USED FOR UNKNOWN INDICATION
     Route: 048
  11. BUPROPION [Concomitant]
     Indication: PRODUCT USED FOR UNKNOWN INDICATION
     Route: 048
  12. VITAMIN D                          /00107901/ [Concomitant]
     Indication: PRODUCT USED FOR UNKNOWN INDICATION
  13. VITAMIN B12                        /00056201/ [Concomitant]
     Indication: PRODUCT USED FOR UNKNOWN INDICATION
  14. SULFASALAZINE [Concomitant]
     Indication: CROHN^S DISEASE

REACTIONS (8)
  - Orthostatic hypotension [Recovering/Resolving]
  - Dizziness [Unknown]
  - Syncope [Unknown]
  - Loss of consciousness [Unknown]
  - Depression [Recovering/Resolving]
  - Carotid artery occlusion [Recovered/Resolved]
  - Cerebrovascular accident [Recovered/Resolved]
  - Transient ischaemic attack [Unknown]
